FAERS Safety Report 5018208-3 (Version None)
Quarter: 2006Q2

REPORT INFORMATION
  Report Type: 
  Country: None (occurrence: None)
  Receive Date: 20060530
  Receipt Date: 20060517
  Transmission Date: 20061013
  Serious: Yes (Death, Other)
  Sender: FDA-Public Use
  Company Number: 2006065270

PATIENT
  Age: 81 Year
  Sex: Male

DRUGS (3)
  1. SOLU-MEDROL [Suspect]
     Indication: ASTHMA
     Dosage: 500 MG, INTRAVENOUS
     Route: 042
     Dates: start: 20060514, end: 20060514
  2. ROCEPHIN [Suspect]
     Indication: ASTHMA
     Dates: start: 20060514, end: 20060514
  3. AMINOPHYLLIN [Concomitant]

REACTIONS (1)
  - HEPATITIS FULMINANT [None]
